FAERS Safety Report 8188455-0 (Version None)
Quarter: 2012Q1

REPORT INFORMATION
  Report Type: 
  Country: None (occurrence: None)
  Receive Date: 20120306
  Receipt Date: 20120228
  Transmission Date: 20120608
  Serious: Yes (Hospitalization, Other)
  Sender: FDA-Public Use
  Company Number: PHHY2012AR017590

PATIENT
  Sex: Female

DRUGS (2)
  1. DIOVAN HCT [Suspect]
     Indication: HYPERTENSION
  2. DIOVAN HCT [Suspect]
     Indication: AGITATION
     Dosage: UNK UKN, UNK

REACTIONS (5)
  - SWELLING [None]
  - NERVOUSNESS [None]
  - AORTIC THROMBOSIS [None]
  - CHEST PAIN [None]
  - CEREBROVASCULAR ACCIDENT [None]
